FAERS Safety Report 18392073 (Version 1)
Quarter: 2020Q4

REPORT INFORMATION
  Report Type: Spontaneous
  Country: US (occurrence: US)
  Receive Date: 20201016
  Receipt Date: 20201016
  Transmission Date: 20210114
  Serious: Yes (Death)
  Sender: FDA-Public Use
  Company Number: None

PATIENT
  Age: 71 Year
  Sex: Male
  Weight: 102.8 kg

DRUGS (22)
  1. DEXAMETHASON 4MG Q6 [Concomitant]
     Dates: start: 20200930, end: 20201005
  2. LOVENOX 100MG EVERY 12 HOURS [Concomitant]
     Dates: start: 20200929, end: 20200930
  3. GABAPENTIN 600MG TWICE DAILY [Concomitant]
     Dates: start: 20200924, end: 20201001
  4. INSULIN THERAPY [Concomitant]
     Dates: start: 20200924, end: 20201002
  5. NIMBEX [Concomitant]
     Active Substance: CISATRACURIUM BESYLATE
     Dates: start: 20200930, end: 20201002
  6. SODIUM BICARB GGT [Concomitant]
     Dates: start: 20201002, end: 20201002
  7. PHENYLEPHRINE GGT [Concomitant]
  8. HEPARIN [Concomitant]
     Active Substance: HEPARIN SODIUM
     Dates: start: 20201001
  9. MERREM 1G IV Q8 [Concomitant]
     Dates: start: 20200930
  10. PROTONIX 40MG IV DAILY [Concomitant]
     Dates: start: 20200924
  11. VANCOMYCIN [Concomitant]
     Active Substance: VANCOMYCIN
     Dates: start: 20200930
  12. PRECEDEX [Concomitant]
     Active Substance: DEXMEDETOMIDINE HYDROCHLORIDE
     Dates: start: 20200930, end: 20201005
  13. LEVOPHED GGT [Concomitant]
  14. ATORVASTATIN 20MG [Concomitant]
     Active Substance: ATORVASTATIN
     Dates: start: 20200924, end: 20201001
  15. REMDESIVIR. [Suspect]
     Active Substance: REMDESIVIR
     Indication: COVID-19
     Route: 042
  16. ALLOPURINOL 100MG DAILY [Concomitant]
     Dates: start: 20200925
  17. ASPIRIN 325MG DAILY [Concomitant]
     Dates: start: 20200930
  18. DEXAMETHASON 6MG IV DAILY [Concomitant]
     Dates: start: 20200924, end: 20200929
  19. ZITHROMAX [Concomitant]
     Active Substance: AZITHROMYCIN DIHYDRATE
     Dates: start: 20200924, end: 20200929
  20. VITAMIN D3 125MCG [Concomitant]
     Dates: start: 20200925
  21. ZINC SULFATE. [Concomitant]
     Active Substance: ZINC SULFATE
     Dates: start: 20200924, end: 20201004
  22. FENTANYL DRIP [Concomitant]
     Dates: start: 20200930, end: 20201005

REACTIONS (13)
  - Acute pulmonary oedema [None]
  - Acidosis [None]
  - Metabolic acidosis [None]
  - Pneumonia pseudomonal [None]
  - Acute respiratory distress syndrome [None]
  - Alanine aminotransferase increased [None]
  - Pneumonia staphylococcal [None]
  - Liver function test abnormal [None]
  - Oxygen saturation decreased [None]
  - Dialysis [None]
  - Respiratory failure [None]
  - Electrolyte imbalance [None]
  - Intestinal ischaemia [None]

NARRATIVE: CASE EVENT DATE: 20201001
